FAERS Safety Report 10652216 (Version 1)
Quarter: 2014Q4

REPORT INFORMATION
  Report Type: Spontaneous
  Country: US (occurrence: None)
  Receive Date: 20141205
  Receipt Date: 20141205
  Transmission Date: 20150529
  Serious: No
  Sender: FDA-Public Use
  Company Number: 163-POMAL-14085149

PATIENT
  Age: 84 Year
  Sex: Female

DRUGS (9)
  1. POMALYST [Suspect]
     Active Substance: POMALIDOMIDE
     Indication: PLASMA CELL MYELOMA
     Dosage: 4 MG, 21 IN 21 D, PO 06/18/2014 -  TEMPORARILY INTERRUPTED
     Route: 048
     Dates: start: 20140618
  2. MULTIVITAMINS (MULTIVITAMINS) (UNKNOWN) [Concomitant]
  3. ARTHRI-FLEX ADVANTAGE (INHALENE) (UNKNOWN) [Concomitant]
  4. FOLBEE (TRIOBE/01502401/) (UNKNOWN) [Concomitant]
  5. VITAMIN B12 (CYANOCOBALAMIN) (UNKNOWN) [Concomitant]
  6. VIT D3 (COLECALCIFEROL) (UNKNOWN) [Concomitant]
  7. COMBIGAN (COMBIGAN) (UNKNOWN) [Concomitant]
  8. METOPROLOL TARTRATE (METOPROLOL TARTRATE) (UNKNOWN) [Concomitant]
  9. LUMIGAN (BIMATOPROST) (UNKNOWN) [Concomitant]

REACTIONS (1)
  - Eye infection [None]
